FAERS Safety Report 7744047-6 (Version None)
Quarter: 2011Q3

REPORT INFORMATION
  Report Type: 
  Country: None (occurrence: None)
  Receive Date: 20110912
  Receipt Date: 20110907
  Transmission Date: 20111222
  Serious: Yes (Other)
  Sender: FDA-Public Use
  Company Number: CA-BRISTOL-MYERS SQUIBB COMPANY-16036915

PATIENT
  Age: 56 Year
  Sex: Male
  Weight: 86 kg

DRUGS (9)
  1. COLESTID [Concomitant]
     Indication: DIARRHOEA
     Dates: start: 19910101
  2. ZOFRAN [Concomitant]
     Indication: ANTIEMETIC SUPPORTIVE CARE
     Dates: start: 20110519
  3. ACETAMINOPHEN [Concomitant]
     Indication: PROPHYLAXIS
     Dates: start: 20110519
  4. CYCLOPHOSPHAMIDE [Suspect]
     Indication: NON-HODGKIN'S LYMPHOMA
     Route: 042
  5. PREDNISONE [Suspect]
     Indication: NON-HODGKIN'S LYMPHOMA
     Route: 048
  6. RITUXIMAB [Suspect]
     Indication: NON-HODGKIN'S LYMPHOMA
     Route: 042
  7. ATIVAN [Concomitant]
     Indication: ANXIETY
     Dates: start: 20110611
  8. VINCRISTINE SULFATE [Suspect]
     Indication: NON-HODGKIN'S LYMPHOMA
     Route: 042
  9. DIPHENHYDRAMINE HCL [Concomitant]
     Indication: PROPHYLAXIS
     Dates: start: 20110519

REACTIONS (1)
  - HY'S LAW CASE [None]
